FAERS Safety Report 8953150 (Version 1)
Quarter: 2012Q4

REPORT INFORMATION
  Report Type: 
  Country: US (occurrence: US)
  Receive Date: 20121206
  Receipt Date: 20121206
  Transmission Date: 20130627
  Serious: Yes (Other)
  Sender: FDA-Public Use
  Company Number: US-AMGEN-USASP2012077827

PATIENT
  Age: 59 Year
  Sex: Male

DRUGS (9)
  1. NEULASTA [Suspect]
     Indication: NEUTROPENIA
     Dosage: UNK
     Route: 058
  2. THALOMID [Suspect]
     Indication: MULTIPLE MYELOMA
     Dosage: 100 mg, UNK
     Route: 048
     Dates: start: 201209
  3. ACYCLOVIR                          /00587301/ [Concomitant]
     Indication: HERPES ZOSTER
     Dosage: UNK
     Route: 048
  4. CALCIUM [Concomitant]
     Indication: BLOOD CALCIUM DECREASED
     Dosage: UNK
     Route: 048
  5. OMEGA 3                            /01334101/ [Concomitant]
     Indication: BLOOD CHOLESTEROL
     Dosage: UNK
     Route: 048
  6. WELLBUTRIN [Concomitant]
     Indication: PRODUCT USED FOR UNKNOWN INDICATION
     Dosage: 150 mg, UNK
  7. CHEMOTHERAPEUTICS [Concomitant]
     Indication: PRODUCT USED FOR UNKNOWN INDICATION
     Dosage: UNK
     Route: 042
  8. LISINOPRIL [Concomitant]
     Indication: HYPERTENSION
     Dosage: UNK
  9. VELCADE [Concomitant]
     Indication: HYPERTENSION
     Dosage: UNK

REACTIONS (2)
  - Hypotension [Recovered/Resolved]
  - Loss of consciousness [Recovered/Resolved]
